FAERS Safety Report 12654074 (Version 1)
Quarter: 2016Q3

REPORT INFORMATION
  Report Type: Spontaneous
  Country: US (occurrence: US)
  Receive Date: 20160816
  Receipt Date: 20160816
  Transmission Date: 20161109
  Serious: Yes (Other)
  Sender: FDA-Public Use
  Company Number: US-ASTRAZENECA-2016SE86253

PATIENT
  Age: 26892 Day
  Sex: Female
  Weight: 76.7 kg

DRUGS (21)
  1. LISINOPRIL. [Suspect]
     Active Substance: LISINOPRIL
     Indication: BLOOD PRESSURE ABNORMAL
     Route: 048
  2. LASIX [Concomitant]
     Active Substance: FUROSEMIDE
     Indication: CARDIAC FAILURE CONGESTIVE
     Route: 048
  3. TAMOXIFEN [Suspect]
     Active Substance: TAMOXIFEN
     Route: 048
     Dates: start: 199701, end: 200212
  4. AFINITOR [Concomitant]
     Active Substance: EVEROLIMUS
     Dates: start: 201401, end: 201402
  5. FEMARA [Concomitant]
     Active Substance: LETROZOLE
     Dosage: 2.5MG UNKNOWN
     Route: 048
     Dates: start: 201106, end: 201110
  6. AFINITOR [Concomitant]
     Active Substance: EVEROLIMUS
     Route: 048
     Dates: start: 201401
  7. FENATYL [Concomitant]
     Active Substance: FENTANYL
     Indication: PAIN
     Dosage: 12 MCG, EVERY THREE YEARS
     Dates: start: 201106
  8. CYTOTOXIN [Concomitant]
     Dates: start: 1997
  9. AFINITOR [Concomitant]
     Active Substance: EVEROLIMUS
     Route: 048
     Dates: end: 201405
  10. XELODA [Concomitant]
     Active Substance: CAPECITABINE
     Dates: start: 201501
  11. ADRIAMYCIN [Concomitant]
     Active Substance: DOXORUBICIN HYDROCHLORIDE
     Dates: start: 1997
  12. AROMASIN [Concomitant]
     Active Substance: EXEMESTANE
     Route: 048
     Dates: start: 201401, end: 201405
  13. CYMBALTA [Concomitant]
     Active Substance: DULOXETINE HYDROCHLORIDE
     Indication: DEPRESSION
     Dates: start: 201109
  14. NARCO [Concomitant]
     Indication: PAIN
     Dosage: 5/325 MG , ONE TABLET  EVERY FOUR HOURS AS NEEDED
     Route: 048
     Dates: start: 201106
  15. AROMASIN [Concomitant]
     Active Substance: EXEMESTANE
     Dates: start: 201401, end: 201405
  16. FASLODEX [Suspect]
     Active Substance: FULVESTRANT
     Indication: BREAST CANCER FEMALE
     Route: 030
     Dates: start: 201111, end: 201312
  17. AVASTIN [Concomitant]
     Active Substance: BEVACIZUMAB
  18. LISINOPRIL. [Suspect]
     Active Substance: LISINOPRIL
     Indication: CARDIAC FAILURE CONGESTIVE
     Route: 048
  19. IBRANCE [Suspect]
     Active Substance: PALBOCICLIB
     Indication: BREAST CANCER FEMALE
     Route: 065
  20. ARIMIDEX [Suspect]
     Active Substance: ANASTROZOLE
     Indication: BREAST CANCER FEMALE
     Dosage: 1.0MG UNKNOWN
     Route: 048
     Dates: start: 200212, end: 200712
  21. AFINITOR [Concomitant]
     Active Substance: EVEROLIMUS
     Dates: start: 201402, end: 201405

REACTIONS (2)
  - Breast cancer female [None]
  - Malignant neoplasm progression [Not Recovered/Not Resolved]

NARRATIVE: CASE EVENT DATE: 20160728
